FAERS Safety Report 4819798-3 (Version None)
Quarter: 2005Q4

REPORT INFORMATION
  Report Type: 
  Country: None (occurrence: None)
  Receive Date: 20051102
  Receipt Date: 20051024
  Transmission Date: 20060501
  Serious: Yes (Other)
  Sender: FDA-Public Use
  Company Number: SE-2005-021292

PATIENT
  Age: 22 Year
  Sex: Female
  Weight: 55 kg

DRUGS (2)
  1. YASMIN [Suspect]
     Dosage: 1 TAB (S), 1X/21DAYS, ORAL
     Route: 048
     Dates: start: 20030101, end: 20050501
  2. CLARITIN [Concomitant]

REACTIONS (5)
  - ADRENAL ADENOMA [None]
  - HEADACHE [None]
  - HYPOKALAEMIA [None]
  - OEDEMA PERIPHERAL [None]
  - WEIGHT DECREASED [None]
